FAERS Safety Report 14801987 (Version 1)
Quarter: 2018Q2

REPORT INFORMATION
  Report Type: Spontaneous
  Country: US (occurrence: US)
  Receive Date: 20180424
  Receipt Date: 20180424
  Transmission Date: 20180711
  Serious: No
  Sender: FDA-Public Use
  Company Number: US-PURDUE-USA-2017-0141854

PATIENT
  Age: 69 Year
  Sex: Female

DRUGS (2)
  1. OXYCODONE HYDROCHLORIDE (SIMILAR TO NDA 22-272) [Suspect]
     Active Substance: OXYCODONE HYDROCHLORIDE
     Indication: PRODUCT USED FOR UNKNOWN INDICATION
     Route: 065
  2. BENADRYL [Concomitant]
     Active Substance: DIPHENHYDRAMINE HYDROCHLORIDE
     Indication: SECRETION DISCHARGE
     Route: 065

REACTIONS (8)
  - Abdominal tenderness [Unknown]
  - Constipation [Unknown]
  - Pyrexia [Unknown]
  - Abdominal pain upper [Unknown]
  - Faeces hard [Unknown]
  - Anxiety [Unknown]
  - Abdominal rigidity [Unknown]
  - Hypotension [Unknown]
